FAERS Safety Report 8558376 (Version 2)
Quarter: 2013Q2

REPORT INFORMATION
  Report Type: Spontaneous
  Country: US (occurrence: US)
  Receive Date: 20120511
  Receipt Date: 20130510
  Transmission Date: 20140414
  Serious: No
  Sender: FDA-Public Use
  Company Number: US-GLAXOSMITHKLINE-A0966088A

PATIENT
  Sex: Female

DRUGS (1)
  1. TYKERB [Suspect]
     Indication: BREAST CANCER
     Dosage: 1000MG PER DAY
     Route: 048

REACTIONS (7)
  - Diarrhoea [Unknown]
  - Burning sensation [Unknown]
  - Erythema [Unknown]
  - Gastrointestinal disorder [Unknown]
  - Constipation [Unknown]
  - Fingerprint loss [Unknown]
  - Onychoclasis [Not Recovered/Not Resolved]
